FAERS Safety Report 9404684 (Version 1)
Quarter: 2013Q3

REPORT INFORMATION
  Report Type: Report from Study
  Country: MX (occurrence: MX)
  Receive Date: 20130717
  Receipt Date: 20130717
  Transmission Date: 20140515
  Serious: Yes (Other)
  Sender: FDA-Public Use
  Company Number: PHHY2013MX012923

PATIENT
  Age: 77 Year
  Sex: Female

DRUGS (2)
  1. CO-DIOVAN [Suspect]
     Indication: HYPERTENSION
     Dosage: 1 DF (80 MG VALS/ 12.5 MG HCTZ), DAILY
     Route: 048
     Dates: start: 201212, end: 201301
  2. KARET [Concomitant]
     Indication: HYPOTHYROIDISM
     Dosage: 1 UKN, DAILY
     Dates: start: 201302

REACTIONS (4)
  - Cataract [Recovered/Resolved]
  - Blood pressure fluctuation [Recovered/Resolved]
  - Acne [Recovering/Resolving]
  - Local swelling [Not Recovered/Not Resolved]
